FAERS Safety Report 8552024-0 (Version None)
Quarter: 2012Q3

REPORT INFORMATION
  Report Type: 
  Country: None (occurrence: None)
  Receive Date: 20120730
  Receipt Date: 20120723
  Transmission Date: 20120928
  Serious: Yes (Hospitalization)
  Sender: FDA-Public Use
  Company Number: JP-GENZYME-FLUD-1001525

PATIENT
  Age: 7 Year
  Sex: Female

DRUGS (6)
  1. FLUDARA [Suspect]
     Indication: CORD BLOOD TRANSPLANT THERAPY
     Dosage: 30 MG/M2, ON DAYS -6 TO -2
     Route: 065
  2. NEUPOGEN [Concomitant]
     Dosage: 200 MCG, QD
     Route: 042
  3. NEUPOGEN [Concomitant]
     Dosage: 300 MCG, QD
     Route: 042
  4. IDARUBICIN HCL [Suspect]
     Indication: CORD BLOOD TRANSPLANT THERAPY
     Dosage: 10 MG/M2 ON DAYS -6 TO -4
     Route: 065
  5. CYTARABINE [Suspect]
     Indication: CORD BLOOD TRANSPLANT THERAPY
     Dosage: 2 G/M2, ON DAYS -6 TO -2
     Route: 065
  6. NEUPOGEN [Concomitant]
     Indication: ACUTE MYELOID LEUKAEMIA
     Dosage: 150 MCG, QD
     Route: 042

REACTIONS (1)
  - TRANSPLANT REJECTION [None]
